FAERS Safety Report 15886510 (Version 1)
Quarter: 2019Q1

REPORT INFORMATION
  Report Type: Spontaneous
  Country: HU (occurrence: HU)
  Receive Date: 20190129
  Receipt Date: 20190129
  Transmission Date: 20190417
  Serious: Yes (Other)
  Sender: FDA-Public Use
  Company Number: PHHY2019HU019382

PATIENT
  Sex: Female

DRUGS (1)
  1. MOMETASONE SANDOZ [Suspect]
     Active Substance: MOMETASONE
     Indication: HYPERSENSITIVITY
     Dosage: 10 DF, ONCE/SINGLE
     Route: 045
     Dates: start: 2017, end: 2018

REACTIONS (1)
  - Retinal detachment [Recovered/Resolved]

NARRATIVE: CASE EVENT DATE: 2018
